FAERS Safety Report 20558857 (Version 1)
Quarter: 2022Q1

REPORT INFORMATION
  Report Type: Spontaneous
  Country: GB (occurrence: GB)
  Receive Date: 20220307
  Receipt Date: 20220307
  Transmission Date: 20220423
  Serious: Yes (Other)
  Sender: FDA-Public Use
  Company Number: GB-MHRA-MED-202202270241537310-WEXPK

PATIENT
  Age: 33 Year
  Sex: Female
  Weight: 72 kg

DRUGS (1)
  1. IRON ISOMALTOSIDE 1000 [Suspect]
     Active Substance: IRON ISOMALTOSIDE 1000
     Indication: Iron deficiency anaemia
     Route: 042
     Dates: start: 20220221

REACTIONS (5)
  - Bronchospasm [Recovered/Resolved]
  - Torticollis [Recovering/Resolving]
  - Chills [Recovered/Resolved]
  - Pyrexia [Unknown]
  - Malaise [Unknown]

NARRATIVE: CASE EVENT DATE: 20220222
